FAERS Safety Report 8164545-3 (Version None)
Quarter: 2012Q1

REPORT INFORMATION
  Report Type: 
  Country: None (occurrence: None)
  Receive Date: 20120225
  Receipt Date: 20120213
  Transmission Date: 20120608
  Serious: Yes (Death)
  Sender: FDA-Public Use
  Company Number: JP-ACCORD-012497

PATIENT
  Age: 68 Year
  Sex: Female

DRUGS (4)
  1. BASILIXIMAB [Suspect]
     Indication: IMMUNOSUPPRESSION
  2. METHYLPREDNISOLONE [Suspect]
     Indication: IMMUNOSUPPRESSION
  3. MYCOPHENOLATE MOFETIL [Suspect]
     Indication: IMMUNOSUPPRESSION
  4. CYCLOSPORINE [Suspect]
     Indication: IMMUNOSUPPRESSION

REACTIONS (1)
  - PNEUMONIA ASPIRATION [None]
